FAERS Safety Report 23636068 (Version 7)
Quarter: 2025Q3

REPORT INFORMATION
  Report Type: Report from Study
  Country: US (occurrence: US)
  Receive Date: 20240315
  Receipt Date: 20250820
  Transmission Date: 20251021
  Serious: Yes (Other)
  Sender: ABBVIE
  Company Number: US-ABBVIE-5679038

PATIENT
  Sex: Female

DRUGS (3)
  1. HUMIRA [Suspect]
     Active Substance: ADALIMUMAB
     Indication: Rheumatoid arthritis
     Route: 058
     Dates: start: 20250715
  2. HUMIRA [Suspect]
     Active Substance: ADALIMUMAB
     Route: 058
  3. HUMIRA [Suspect]
     Active Substance: ADALIMUMAB
     Route: 058
     Dates: start: 20230517

REACTIONS (6)
  - Systemic lupus erythematosus [Not Recovered/Not Resolved]
  - Throat irritation [Not Recovered/Not Resolved]
  - Discomfort [Recovering/Resolving]
  - Migraine [Recovering/Resolving]
  - Fibromyalgia [Recovering/Resolving]
  - Osteoarthritis [Recovering/Resolving]
